FAERS Safety Report 6659590-0 (Version None)
Quarter: 2010Q1

REPORT INFORMATION
  Report Type: 
  Country: None (occurrence: None)
  Receive Date: 20100330
  Receipt Date: 20100325
  Transmission Date: 20100710
  Serious: Yes (Disabling)
  Sender: FDA-Public Use
  Company Number: GB-WYE-G05833110

PATIENT
  Age: 69 Year
  Sex: Female

DRUGS (6)
  1. LANSOPRAZOLE [Suspect]
     Indication: DYSPEPSIA
     Dosage: 30 MG, FREQUENCY UNKNOWN
     Route: 048
     Dates: end: 20091001
  2. LOSARTAN POTASSIUM [Concomitant]
     Indication: BLOOD PRESSURE MANAGEMENT
     Dosage: UNKNOWN
     Route: 048
  3. CITALOPRAM HYDROBROMIDE [Concomitant]
     Indication: DEPRESSION
     Dosage: UNKNOWN
     Route: 048
  4. GLUCOSAMINE [Concomitant]
     Indication: ARTHRITIS
     Dosage: UNKNOWN
     Route: 048
  5. AMLODIPINE [Concomitant]
     Indication: BLOOD PRESSURE MANAGEMENT
     Dosage: 10 MG, FREQUENCY UNKNOWN
     Route: 048
  6. BENDROFLUMETHIAZIDE [Concomitant]
     Indication: BLOOD PRESSURE MANAGEMENT
     Dosage: 2.5 MG, FREQUENCY UNKNOWN
     Route: 048

REACTIONS (1)
  - HEPATITIS [None]
